FAERS Safety Report 13239675 (Version 1)
Quarter: 2017Q1

REPORT INFORMATION
  Report Type: Report from Study
  Country: DE (occurrence: DE)
  Receive Date: 20170216
  Receipt Date: 20170216
  Transmission Date: 20170428
  Serious: Yes (Death, Hospitalization)
  Sender: FDA-Public Use
  Company Number: DE-BIOGEN-2017BI00357311

PATIENT
  Age: 58 Year
  Sex: Male

DRUGS (2)
  1. PLEGRIDY [Suspect]
     Active Substance: PEGINTERFERON BETA-1A
     Indication: MULTIPLE SCLEROSIS
     Route: 058
     Dates: start: 20141106, end: 20161115
  2. FAMPYRA [Suspect]
     Active Substance: DALFAMPRIDINE
     Indication: GAIT DISTURBANCE
     Route: 048
     Dates: start: 2012, end: 20161115

REACTIONS (6)
  - Emotional disorder [Fatal]
  - Mental impairment [Fatal]
  - Myocardial infarction [Fatal]
  - Bladder disorder [Recovered/Resolved]
  - General physical health deterioration [Fatal]
  - Prostate cancer [Recovered/Resolved]

NARRATIVE: CASE EVENT DATE: 2016
